FAERS Safety Report 24055751 (Version 1)
Quarter: 2024Q3

REPORT INFORMATION
  Report Type: Spontaneous
  Country: US (occurrence: US)
  Receive Date: 20240705
  Receipt Date: 20240705
  Transmission Date: 20241016
  Serious: Yes (Other)
  Sender: CALLIDITAS THERAPEUTICS
  Company Number: US-Calliditas-2024CAL01203

PATIENT
  Age: 81 Year
  Sex: Male

DRUGS (1)
  1. TARPEYO [Suspect]
     Active Substance: BUDESONIDE
     Indication: End stage renal disease
     Route: 048

REACTIONS (3)
  - Diabetes mellitus [Unknown]
  - Contusion [Unknown]
  - Off label use [Unknown]
